FAERS Safety Report 10022762 (Version 2)
Quarter: 2014Q1

REPORT INFORMATION
  Report Type: Spontaneous
  Country: US (occurrence: US)
  Receive Date: 20140319
  Receipt Date: 20140319
  Transmission Date: 20141002
  Serious: Yes (Other)
  Sender: FDA-Public Use
  Company Number: US-GE HEALTHCARE MEDICAL DIAGNOSTICS-OSCN-PR-0806S-0323

PATIENT
  Age: 63 Year
  Sex: Female

DRUGS (5)
  1. OMNISCAN [Suspect]
     Indication: PAIN IN EXTREMITY
     Route: 042
     Dates: start: 20041028, end: 20041028
  2. PROHANCE [Suspect]
     Indication: SYNCOPE
     Route: 042
     Dates: start: 20020101, end: 20020101
  3. PROHANCE [Suspect]
     Indication: DIABETES MELLITUS
  4. PROHANCE [Suspect]
     Indication: HYPERTENSION
  5. ERYTHROPOIETIN [Concomitant]
     Indication: ANAEMIA
     Dates: start: 20001127

REACTIONS (1)
  - Nephrogenic systemic fibrosis [Not Recovered/Not Resolved]
